FAERS Safety Report 9631411 (Version 1)
Quarter: 2013Q4

REPORT INFORMATION
  Report Type: Spontaneous
  Country: US (occurrence: None)
  Receive Date: 20131017
  Receipt Date: 20131017
  Transmission Date: 20140711
  Serious: Yes (Life-Threatening)
  Sender: FDA-Public Use
  Company Number: None

PATIENT
  Age: 34 Year
  Sex: Male
  Weight: 78.02 kg

DRUGS (8)
  1. DIVALPROEX SODIUM [Suspect]
     Indication: SCHIZOAFFECTIVE DISORDER BIPOLAR TYPE
     Dates: start: 20130118, end: 20130122
  2. BENZTROPINE [Concomitant]
  3. BUPROPRION SR [Concomitant]
  4. CONAZEPAM [Concomitant]
  5. DEPAKOTE ER [Concomitant]
  6. FLUPHENAZINE [Concomitant]
  7. HYDROCODONE/APAP5/325 [Concomitant]
  8. TRAMADOL [Concomitant]

REACTIONS (5)
  - Treatment noncompliance [None]
  - Drug abuse [None]
  - Loss of consciousness [None]
  - Sedation [None]
  - Ammonia increased [None]
